FAERS Safety Report 5682260-2 (Version None)
Quarter: 2008Q1

REPORT INFORMATION
  Report Type: 
  Country: None (occurrence: None)
  Receive Date: 20080326
  Receipt Date: 20080326
  Transmission Date: 20080703
  Serious: Yes (Life-Threatening, Hospitalization)
  Sender: FDA-Public Use
  Company Number: None

PATIENT
  Age: 65 Year
  Sex: Female
  Weight: 134 kg

DRUGS (2)
  1. REGULAR INSULIN U500 500 UNITS/ML [Suspect]
     Indication: DIABETES MELLITUS
     Dosage: 45 UNITS-PER HOME MED REC FORM Q AM SQ
     Route: 058
  2. REGULAR INSULIN U500 500 UNITS/ML [Suspect]
     Dosage: 20 UNITS-PER HOME MED REC FORM Q PM SQ
     Route: 058

REACTIONS (7)
  - BLOOD GLUCOSE DECREASED [None]
  - FALL [None]
  - LOSS OF CONSCIOUSNESS [None]
  - OBESITY [None]
  - OEDEMA PERIPHERAL [None]
  - UNRESPONSIVE TO STIMULI [None]
  - URINARY INCONTINENCE [None]
